FAERS Safety Report 8151310-6 (Version None)
Quarter: 2012Q1

REPORT INFORMATION
  Report Type: 
  Country: None (occurrence: None)
  Receive Date: 20120220
  Receipt Date: 20120215
  Transmission Date: 20120608
  Serious: Yes (Disabling, Other)
  Sender: FDA-Public Use
  Company Number: CA-BAYER-2012-015276

PATIENT
  Age: 65 Year
  Sex: Female

DRUGS (6)
  1. ANTI-ASTHMATICS [Concomitant]
  2. AVELOX [Suspect]
     Dosage: UNK
     Route: 048
  3. MULTI-VITAMINS [Concomitant]
  4. GLUCOSAMINE [Concomitant]
  5. PREDNISONE [Concomitant]
  6. SPIRIVA [Concomitant]

REACTIONS (10)
  - CHEST DISCOMFORT [None]
  - HEADACHE [None]
  - GAIT DISTURBANCE [None]
  - JOINT SWELLING [None]
  - DYSPNOEA [None]
  - OEDEMA PERIPHERAL [None]
  - ARTHRALGIA [None]
  - NAUSEA [None]
  - MUSCLE SPASMS [None]
  - PARAESTHESIA [None]
